FAERS Safety Report 19175597 (Version 2)
Quarter: 2021Q3

REPORT INFORMATION
  Report Type: Spontaneous
  Country: BR (occurrence: BR)
  Receive Date: 20210424
  Receipt Date: 20210903
  Transmission Date: 20211014
  Serious: Yes (Other)
  Sender: FDA-Public Use
  Company Number: BR-ABBVIE-21P-020-3872699-00

PATIENT
  Sex: Female
  Weight: 53 kg

DRUGS (7)
  1. SYNTHROID [Suspect]
     Active Substance: LEVOTHYROXINE SODIUM
     Indication: THYROID DISORDER
     Dosage: 5 DAYS IN THE WEEK
     Route: 048
     Dates: start: 2014, end: 2014
  2. VITAMIN D3 [Concomitant]
     Active Substance: CHOLECALCIFEROL
     Indication: VITAMIN SUPPLEMENTATION
     Route: 048
  3. HYALUFEM [Suspect]
     Active Substance: HYALURONIC ACID
     Indication: INADEQUATE LUBRICATION
     Dosage: SHE USED TWICE OR ONCE A WEEK
     Route: 065
     Dates: start: 2019
  4. SYNTHROID [Suspect]
     Active Substance: LEVOTHYROXINE SODIUM
     Dosage: KEEPS USING IT, EVERY DAY.
     Route: 048
  5. SYNTHROID [Suspect]
     Active Substance: LEVOTHYROXINE SODIUM
     Indication: HORMONE REPLACEMENT THERAPY
     Dosage: 2 TIMES IN THE WEEK
     Route: 048
     Dates: start: 2014
  6. PANTOGAR [AMINOBENZOIC ACID;CALCIUM PANTOTHENATE;CYSTINE;KERATIN;SACCH [Concomitant]
     Indication: HAIR GROWTH ABNORMAL
     Dosage: USED FOR 8 MONTHS, AND STOPPED FOR 6 MONTHS. STARTED USING AGAIN 6 OR 7 MONTHS AGO
     Dates: start: 2019
  7. PANTOGAR [AMINOBENZOIC ACID;CALCIUM PANTOTHENATE;CYSTINE;KERATIN;SACCH [Concomitant]
     Indication: SUPPLEMENTATION THERAPY

REACTIONS (4)
  - Eye irritation [Not Recovered/Not Resolved]
  - Eye discharge [Not Recovered/Not Resolved]
  - Cataract [Unknown]
  - Inappropriate schedule of product administration [Unknown]
